FAERS Safety Report 6469449-X (Version None)
Quarter: 2009Q4

REPORT INFORMATION
  Report Type: 
  Country: None (occurrence: None)
  Receive Date: 20091203
  Receipt Date: 20091123
  Transmission Date: 20100525
  Serious: No
  Sender: FDA-Public Use
  Company Number: US-ELI_LILLY_AND_COMPANY-US200911007208

PATIENT
  Sex: Female

DRUGS (4)
  1. ZYPREXA ZYDIS [Suspect]
     Dosage: 1 D/F, UNK
     Dates: start: 20091021, end: 20091120
  2. KLONOPIN [Concomitant]
     Dosage: 2 MG, UNK
  3. DEPAKOTE ER [Concomitant]
     Dosage: 500 MG, UNK
  4. PROPRANOLOL [Concomitant]
     Dosage: 10 MG, AS NEEDED

REACTIONS (2)
  - GINGIVAL BLEEDING [None]
  - GINGIVAL RECESSION [None]
